FAERS Safety Report 5256612-9 (Version None)
Quarter: 2007Q1

REPORT INFORMATION
  Report Type: 
  Country: None (occurrence: None)
  Receive Date: 20070306
  Receipt Date: 20070222
  Transmission Date: 20070707
  Serious: Yes (Death)
  Sender: FDA-Public Use
  Company Number: AU-SANOFI-SYNTHELABO-A01200701957

PATIENT
  Age: 36 Year
  Sex: Male

DRUGS (1)
  1. ZOLPIDEM TARTRATE [Suspect]
     Indication: INSOMNIA
     Dosage: UNK
     Route: 065

REACTIONS (1)
  - SLEEP WALKING [None]
